APPROVED DRUG PRODUCT: FRUZAQLA
Active Ingredient: FRUQUINTINIB
Strength: 5MG
Dosage Form/Route: CAPSULE;ORAL
Application: N217564 | Product #002
Applicant: TAKEDA PHARMACEUTICALS USA INC
Approved: Nov 8, 2023 | RLD: Yes | RS: Yes | Type: RX

PATENTS:
Patent 11046674 | Expires: Sep 7, 2035
Patent 10519142 | Expires: Sep 7, 2035
Patent 8212033 | Expires: May 9, 2028
Patent 7829574 | Expires: Mar 23, 2032

EXCLUSIVITY:
Code: NCE | Date: Nov 8, 2028